FAERS Safety Report 25144447 (Version 1)
Quarter: 2025Q2

REPORT INFORMATION
  Report Type: Spontaneous
  Country: US (occurrence: US)
  Receive Date: 20250401
  Receipt Date: 20250401
  Transmission Date: 20250716
  Serious: Yes (Death, Hospitalization)
  Sender: CHIESI
  Company Number: US-CHIESI-2025CHF02049

PATIENT
  Age: 63 Year
  Sex: Male

DRUGS (2)
  1. KENGREAL [Suspect]
     Active Substance: CANGRELOR
     Indication: Ischaemic stroke
     Route: 065
  2. KENGREAL [Suspect]
     Active Substance: CANGRELOR
     Indication: Off label use

REACTIONS (3)
  - Restenosis [Fatal]
  - Inappropriate schedule of product administration [Fatal]
  - Off label use [Recovered/Resolved]
